FAERS Safety Report 6692352-7 (Version None)
Quarter: 2010Q2

REPORT INFORMATION
  Report Type: 
  Country: None (occurrence: None)
  Receive Date: 20100422
  Receipt Date: 20100414
  Transmission Date: 20101027
  Serious: Yes (Hospitalization)
  Sender: FDA-Public Use
  Company Number: FR-ASTRAZENECA-2010SE16829

PATIENT
  Age: 17 Year
  Sex: Male

DRUGS (4)
  1. MOPRAL [Suspect]
     Route: 048
     Dates: start: 20020101
  2. METHOTREXATE (UNKNOWN LABORATORY INTERACTING DRUG) [Interacting]
     Indication: OSTEOSARCOMA LOCALISED
     Route: 042
  3. VORAXAZE [Concomitant]
  4. UNSPECIFIED PENICILLIN ANTIBIOTIC THERAPY [Concomitant]

REACTIONS (3)
  - DRUG INTERACTION [None]
  - DRUG LEVEL INCREASED [None]
  - RENAL FAILURE ACUTE [None]
